FAERS Safety Report 4365982-5 (Version None)
Quarter: 2004Q2

REPORT INFORMATION
  Report Type: 
  Country: None (occurrence: None)
  Receive Date: 20040526
  Receipt Date: 20040517
  Transmission Date: 20050107
  Serious: Yes (Hospitalization)
  Sender: FDA-Public Use
  Company Number: 200412009FR

PATIENT
  Sex: Male

DRUGS (9)
  1. KETEK [Suspect]
     Indication: BRONCHITIS
     Route: 048
  2. KETEK [Suspect]
     Indication: SINUSITIS
     Route: 048
  3. PREVISCAN [Concomitant]
     Indication: ARRHYTHMIA
  4. XANAX [Concomitant]
  5. COVERSYL [Concomitant]
  6. PRAVASTATIN [Concomitant]
  7. TENORMIN [Concomitant]
  8. ASPIRIN [Concomitant]
  9. PENICILLIN [Concomitant]

REACTIONS (3)
  - ABDOMINAL PAIN [None]
  - INTERNATIONAL NORMALISED RATIO INCREASED [None]
  - MUSCLE HAEMORRHAGE [None]
